FAERS Safety Report 10580063 (Version 1)
Quarter: 2014Q4

REPORT INFORMATION
  Report Type: Spontaneous
  Country: US (occurrence: US)
  Receive Date: 20141112
  Receipt Date: 20141112
  Transmission Date: 20150529
  Serious: Yes (Other)
  Sender: FDA-Public Use
  Company Number: US-PFIZER INC-2014308166

PATIENT
  Sex: Male

DRUGS (1)
  1. LYRICA [Suspect]
     Active Substance: PREGABALIN
     Dosage: 1500MG AND 2000MG/20 CAPSULES OF 100MG OF LYRICA IN A DAY.

REACTIONS (2)
  - Overdose [Unknown]
  - Drug abuse [Unknown]
